FAERS Safety Report 20018080 (Version 1)
Quarter: 2021Q4

REPORT INFORMATION
  Report Type: Spontaneous
  Country: KR (occurrence: KR)
  Receive Date: 20211101
  Receipt Date: 20211101
  Transmission Date: 20220303
  Serious: Yes (Other)
  Sender: FDA-Public Use
  Company Number: KR-AMGEN-KORSL2021166887

PATIENT
  Age: 60 Year
  Sex: Male

DRUGS (40)
  1. FILGRASTIM [Suspect]
     Active Substance: FILGRASTIM
     Indication: Product used for unknown indication
     Dosage: 150 UG, QD
     Route: 058
     Dates: start: 20160822, end: 20160822
  2. FILGRASTIM [Suspect]
     Active Substance: FILGRASTIM
     Dosage: 300 UG, QD
     Route: 042
     Dates: start: 20160905, end: 20160905
  3. APREPITANT [Suspect]
     Active Substance: APREPITANT
     Indication: Product used for unknown indication
     Dosage: 150 MG, QD
     Route: 042
     Dates: start: 20160712, end: 20160712
  4. APREPITANT [Suspect]
     Active Substance: APREPITANT
     Dosage: 150 MG, QD
     Route: 042
     Dates: start: 20160802, end: 20160802
  5. APREPITANT [Suspect]
     Active Substance: APREPITANT
     Dosage: 150 MG, QD
     Route: 042
     Dates: start: 20160823, end: 20160823
  6. APREPITANT [Suspect]
     Active Substance: APREPITANT
     Dosage: 150 MG, QD
     Route: 042
     Dates: start: 20160823, end: 20160823
  7. ACETYLCYSTEINE [Concomitant]
     Active Substance: ACETYLCYSTEINE
     Indication: Product used for unknown indication
     Dosage: 200 MG, QD
     Route: 048
     Dates: start: 20160809, end: 20160812
  8. ASPIRIN [Concomitant]
     Active Substance: ASPIRIN
     Indication: Product used for unknown indication
     Dosage: 100 MG, QD
     Route: 048
     Dates: start: 20160803, end: 20160810
  9. ALPRAZOLAM [Concomitant]
     Active Substance: ALPRAZOLAM
     Indication: Product used for unknown indication
     Dosage: 0.25 MILLIGRAM, QD
     Route: 048
     Dates: start: 20160831, end: 20160908
  10. CEFDINIR [Concomitant]
     Active Substance: CEFDINIR
     Indication: Product used for unknown indication
     Dosage: 200 MG, QD
     Dates: start: 20160908, end: 20160915
  11. CHLORPHENIRAMINE MALEATE [Concomitant]
     Active Substance: CHLORPHENIRAMINE MALEATE
     Indication: Product used for unknown indication
     Dosage: 2 MG, QD
     Route: 058
     Dates: start: 20160712, end: 20160712
  12. CHLORPHENIRAMINE MALEATE [Concomitant]
     Active Substance: CHLORPHENIRAMINE MALEATE
     Dosage: 2 MG, QD
     Route: 058
     Dates: start: 20160823, end: 20160824
  13. CHLORPHENIRAMINE MALEATE [Concomitant]
     Active Substance: CHLORPHENIRAMINE MALEATE
     Dosage: 2 MG, QD
     Route: 058
     Dates: start: 20160827, end: 20160827
  14. CISPLATIN [Concomitant]
     Active Substance: CISPLATIN
     Indication: Product used for unknown indication
     Dosage: 137 MG, QD
     Route: 042
     Dates: start: 20160712, end: 20160712
  15. CISPLATIN [Concomitant]
     Active Substance: CISPLATIN
     Dosage: 137 MG, QD
     Route: 042
     Dates: start: 20160802, end: 20160802
  16. CISPLATIN [Concomitant]
     Active Substance: CISPLATIN
     Dosage: 137 MG, QD
     Route: 042
     Dates: start: 20160823, end: 20160823
  17. CISPLATIN [Concomitant]
     Active Substance: CISPLATIN
     Dosage: 137 MG, QD
     Route: 042
     Dates: start: 20160921, end: 20160921
  18. CODEINE [Concomitant]
     Active Substance: CODEINE
     Indication: Product used for unknown indication
     Dosage: 20 MG, QD
     Route: 048
     Dates: start: 20160712, end: 20160713
  19. DEXAMETHASONE [Concomitant]
     Active Substance: DEXAMETHASONE
     Indication: Product used for unknown indication
     Dosage: 5 MG, QD
     Route: 048
     Dates: start: 20160829, end: 20160829
  20. DEXAMETHASONE [Concomitant]
     Active Substance: DEXAMETHASONE
     Dosage: 4 MG, QD
     Route: 048
     Dates: start: 20160713, end: 20160715
  21. DEXAMETHASONE [Concomitant]
     Active Substance: DEXAMETHASONE
     Dosage: 4 MG, QD
     Route: 048
     Dates: start: 20160803, end: 20160805
  22. DEXAMETHASONE [Concomitant]
     Active Substance: DEXAMETHASONE
     Dosage: 4 MG, QD
     Route: 048
     Dates: start: 20160824, end: 20160826
  23. DEXAMETHASONE [Concomitant]
     Active Substance: DEXAMETHASONE
     Dosage: 4 MG, QD
     Route: 048
     Dates: start: 20160922, end: 20160922
  24. DEXAMETHASONE [Concomitant]
     Active Substance: DEXAMETHASONE
     Dosage: 12 MG, QD
     Route: 042
     Dates: start: 20160712, end: 20160712
  25. DEXAMETHASONE [Concomitant]
     Active Substance: DEXAMETHASONE
     Dosage: 12 MG, QD
     Route: 048
     Dates: start: 20160802, end: 20160802
  26. DEXAMETHASONE [Concomitant]
     Active Substance: DEXAMETHASONE
     Dosage: 12 MG, QD
     Route: 048
     Dates: start: 20160823, end: 20160823
  27. DEXAMETHASONE [Concomitant]
     Active Substance: DEXAMETHASONE
     Dosage: 12 MG, QD
     Route: 048
     Dates: start: 20160921, end: 20160921
  28. ESOMEPRAZOLE [Concomitant]
     Active Substance: ESOMEPRAZOLE
     Indication: Product used for unknown indication
     Dosage: 40 MG, QD
     Route: 042
     Dates: start: 20160901, end: 20160908
  29. ESOMEPRAZOLE [Concomitant]
     Active Substance: ESOMEPRAZOLE
     Dosage: 40 MG, QD
     Route: 048
     Dates: start: 20160909, end: 20160920
  30. ESOMEPRAZOLE [Concomitant]
     Active Substance: ESOMEPRAZOLE
     Dosage: 40 MG, QD
     Route: 042
     Dates: start: 20160920, end: 20160923
  31. ETOPOSIDE [Concomitant]
     Active Substance: ETOPOSIDE
     Indication: Product used for unknown indication
     Dosage: 186 MG, QD
     Route: 042
     Dates: start: 20160921, end: 20160923
  32. ETOPOSIDE [Concomitant]
     Active Substance: ETOPOSIDE
     Dosage: 193 MG, QD
     Route: 042
     Dates: start: 20160802, end: 20160804
  33. ETOPOSIDE [Concomitant]
     Active Substance: ETOPOSIDE
     Dosage: 193 MG, QD
     Route: 042
     Dates: start: 20160823, end: 20160825
  34. ETOPOSIDE [Concomitant]
     Active Substance: ETOPOSIDE
     Dosage: 196 MG, QD
     Route: 042
     Dates: start: 20160712, end: 20160714
  35. FAMOTIDINE [Concomitant]
     Active Substance: FAMOTIDINE
     Indication: Product used for unknown indication
     Dosage: 20 MG, QD
     Route: 042
     Dates: start: 20160901, end: 20160902
  36. FENTANYL [Concomitant]
     Active Substance: FENTANYL
     Indication: Product used for unknown indication
     Dosage: 25 MG, QD
     Dates: start: 20160804, end: 20161027
  37. FUROSEMIDE [Concomitant]
     Active Substance: FUROSEMIDE
     Indication: Product used for unknown indication
     Dosage: 20 MG, QD
     Route: 030
     Dates: start: 20160712, end: 20160712
  38. FUROSEMIDE [Concomitant]
     Active Substance: FUROSEMIDE
     Dosage: 20 MG, QD
     Route: 030
     Dates: start: 20160802, end: 20160802
  39. FUROSEMIDE [Concomitant]
     Active Substance: FUROSEMIDE
     Dosage: 20 MG, QD
     Route: 030
     Dates: start: 20160823, end: 20160823
  40. FUROSEMIDE [Concomitant]
     Active Substance: FUROSEMIDE
     Dosage: 20 MG, QD
     Route: 030
     Dates: start: 20160921, end: 20160921

REACTIONS (17)
  - Depression [Recovered/Resolved]
  - Oesophagitis [Recovered/Resolved]
  - Oesophagitis [Recovered/Resolved]
  - Insomnia [Recovered/Resolved]
  - Cough [Recovered/Resolved]
  - Sputum increased [Recovered/Resolved]
  - Cough [Recovered/Resolved]
  - Gastrooesophageal reflux disease [Recovered/Resolved]
  - Nausea [Recovered/Resolved]
  - Abdominal pain upper [Recovered/Resolved]
  - Febrile neutropenia [Recovered/Resolved]
  - Neutropenia [Recovered/Resolved]
  - Cough [Recovered/Resolved]
  - Nausea [Recovered/Resolved]
  - Nausea [Recovered/Resolved]
  - Nausea [Recovered/Resolved]
  - Nausea [Recovered/Resolved]

NARRATIVE: CASE EVENT DATE: 20160822
